FAERS Safety Report 7992530-0 (Version None)
Quarter: 2011Q4

REPORT INFORMATION
  Report Type: 
  Country: None (occurrence: None)
  Receive Date: 20111219
  Receipt Date: 20110203
  Transmission Date: 20120403
  Serious: No
  Sender: FDA-Public Use
  Company Number: US-ASTRAZENECA-2011SE07661

PATIENT
  Age: 20008 Day
  Sex: Male

DRUGS (6)
  1. CRESTOR [Suspect]
     Route: 048
     Dates: start: 20101202
  2. VICODIN [Concomitant]
     Indication: PAIN
     Dosage: 325/10 MG
  3. ALPRAZOLAM [Concomitant]
  4. METOPROLOL SUCCINATE [Concomitant]
  5. OLMESARTAN MEDOXOMIL [Concomitant]
  6. NIASPAN [Suspect]
     Indication: BLOOD CHOLESTEROL INCREASED
     Route: 048
     Dates: start: 20101202

REACTIONS (4)
  - OEDEMA PERIPHERAL [None]
  - CHEST PAIN [None]
  - VISION BLURRED [None]
  - CHEST DISCOMFORT [None]
